FAERS Safety Report 5042452-2 (Version None)
Quarter: 2006Q3

REPORT INFORMATION
  Report Type: 
  Country: None (occurrence: None)
  Receive Date: 20060705
  Receipt Date: 20060206
  Transmission Date: 20061208
  Serious: Yes (Hospitalization, Other)
  Sender: FDA-Public Use
  Company Number: PHBS2006IT02202

PATIENT
  Age: 71 Year
  Sex: Female

DRUGS (7)
  1. ZOMETA [Suspect]
     Indication: MULTIPLE MYELOMA
     Dosage: 4 MG, QMO
     Route: 042
     Dates: start: 20030601, end: 20040401
  2. ZOMETA [Suspect]
     Dosage: 2 MG, QMO
     Route: 042
     Dates: start: 20041101, end: 20050901
  3. AREDIA [Suspect]
     Indication: MULTIPLE MYELOMA
     Dosage: 60 MG, QMO
     Route: 042
     Dates: start: 20051001, end: 20060101
  4. MELPHALAN [Concomitant]
  5. PREDNISONE [Concomitant]
  6. EPOGEN [Concomitant]
  7. MORPHINE [Concomitant]

REACTIONS (7)
  - BONE DISORDER [None]
  - IMPAIRED HEALING [None]
  - OSTEONECROSIS [None]
  - PAIN [None]
  - TOOTH ABSCESS [None]
  - TOOTH EXTRACTION [None]
  - WOUND TREATMENT [None]
